FAERS Safety Report 13677280 (Version 1)
Quarter: 2017Q2

REPORT INFORMATION
  Report Type: Spontaneous
  Country: US (occurrence: US)
  Receive Date: 20170622
  Receipt Date: 20170622
  Transmission Date: 20170830
  Serious: No
  Sender: FDA-Public Use
  Company Number: US-BAUSCH-BL-2016-010694

PATIENT
  Age: 73 Year
  Sex: Male
  Weight: 163.44 kg

DRUGS (1)
  1. PROVENGE [Suspect]
     Active Substance: SIPULEUCEL-T
     Indication: PROSTATE CANCER
     Route: 042
     Dates: start: 20160505, end: 20160505

REACTIONS (5)
  - Device occlusion [Unknown]
  - Restlessness [None]
  - Muscle twitching [None]
  - Back pain [None]
  - Discomfort [None]

NARRATIVE: CASE EVENT DATE: 20160502
